FAERS Safety Report 5661596-5 (Version None)
Quarter: 2008Q1

REPORT INFORMATION
  Report Type: 
  Country: None (occurrence: None)
  Receive Date: 20080312
  Receipt Date: 20080229
  Transmission Date: 20080703
  Serious: Yes (Other)
  Sender: FDA-Public Use
  Company Number: PHFR2008GB01050

PATIENT
  Age: 59 Year
  Sex: Female

DRUGS (6)
  1. DASATINIB [Concomitant]
     Dosage: 70 MG, BID
     Route: 065
     Dates: start: 20071017
  2. LEVOTHYROXINE SODIUM [Concomitant]
     Indication: HYPERTHYROIDISM
     Route: 065
  3. HYDROXYUREA [Concomitant]
     Dosage: 1G DAILY
     Route: 065
  4. ASPIRIN [Concomitant]
     Dosage: 75MG DAILY
     Route: 065
  5. IMATINIB [Suspect]
     Indication: CHRONIC MYELOID LEUKAEMIA
     Dosage: 600MG/DAY
     Route: 065
     Dates: start: 20070523, end: 20070905
  6. IMATINIB [Suspect]
     Dosage: 400MG/DAY
     Route: 065
     Dates: start: 20050826, end: 20061120

REACTIONS (3)
  - ACUTE LYMPHOCYTIC LEUKAEMIA [None]
  - NO THERAPEUTIC RESPONSE [None]
  - TREATMENT FAILURE [None]
